FAERS Safety Report 8117639-2 (Version None)
Quarter: 2012Q1

REPORT INFORMATION
  Report Type: 
  Country: None (occurrence: None)
  Receive Date: 20120207
  Receipt Date: 20120202
  Transmission Date: 20120608
  Serious: Yes (Other)
  Sender: FDA-Public Use
  Company Number: BR-ACCORD-012273

PATIENT
  Age: 61 Year
  Sex: Female
  Weight: 50 kg

DRUGS (10)
  1. CARBOPLATIN [Concomitant]
     Indication: CHEMOTHERAPY
     Dosage: 565MG E.V.
     Route: 042
  2. SERTRALINA [Concomitant]
  3. LORAZEPAM [Concomitant]
  4. PACLITAXEL [Suspect]
     Indication: LUNG NEOPLASM MALIGNANT
     Route: 042
  5. ONDANSETRON [Concomitant]
     Dosage: 20 MG E.V
     Route: 042
  6. FENITOINA [Concomitant]
  7. RANITIDINA [Concomitant]
     Dosage: 50 MG E.V
     Route: 042
  8. DIPHENHYDRAMIN [Concomitant]
     Indication: CHEMOTHERAPY
     Dosage: 50 MG E.V
     Route: 042
  9. DEXAMETASONA [Concomitant]
     Indication: CHEMOTHERAPY
     Dosage: 20 MG E.V.
     Route: 042
  10. OMEPRAZOLE [Concomitant]

REACTIONS (4)
  - FEELING HOT [None]
  - SUFFOCATION FEELING [None]
  - OXYGEN SATURATION DECREASED [None]
  - RASH [None]
